FAERS Safety Report 15861677 (Version 1)
Quarter: 2019Q1

REPORT INFORMATION
  Report Type: Spontaneous
  Country: US (occurrence: US)
  Receive Date: 20190124
  Receipt Date: 20190124
  Transmission Date: 20190417
  Serious: No
  Sender: FDA-Public Use
  Company Number: None

PATIENT
  Age: 64 Year
  Sex: Female
  Weight: 79.2 kg

DRUGS (4)
  1. EUCRISA [Suspect]
     Active Substance: CRISABOROLE
     Indication: ECZEMA
     Dosage: ?          QUANTITY:1 THIN LAYER;?
     Route: 061
     Dates: start: 20190123, end: 20190123
  2. MULTI-VITAMIN FOR WOMEN [Concomitant]
  3. LORATADINE. [Concomitant]
     Active Substance: LORATADINE
  4. ARMOUR THYROID [Concomitant]
     Active Substance: THYROID, PORCINE

REACTIONS (4)
  - Application site vesicles [None]
  - Application site swelling [None]
  - Application site pain [None]
  - Pruritus [None]

NARRATIVE: CASE EVENT DATE: 20190123
